FAERS Safety Report 13621498 (Version 2)
Quarter: 2017Q3

REPORT INFORMATION
  Report Type: Spontaneous
  Country: FR (occurrence: FR)
  Receive Date: 20170607
  Receipt Date: 20170907
  Transmission Date: 20171127
  Serious: Yes (Other)
  Sender: FDA-Public Use
  Company Number: FR-SUN PHARMACEUTICAL INDUSTRIES LTD-2017R1-142467

PATIENT
  Age: 52 Year
  Sex: Female

DRUGS (4)
  1. TAXOTERE [Interacting]
     Active Substance: DOCETAXEL
     Indication: ADENOCARCINOMA
  2. TAMOXIFEN [Interacting]
     Active Substance: TAMOXIFEN
     Indication: ADENOCARCINOMA
  3. TAXOTERE [Suspect]
     Active Substance: DOCETAXEL
     Indication: BREAST CANCER
     Dosage: UNK
     Route: 065
  4. TAMOXIFEN [Interacting]
     Active Substance: TAMOXIFEN
     Indication: BREAST CANCER
     Dosage: UNK
     Route: 065

REACTIONS (2)
  - Retinopathy [Unknown]
  - Drug interaction [Unknown]
